FAERS Safety Report 22590308 (Version 1)
Quarter: 2023Q2

REPORT INFORMATION
  Report Type: Report from Study
  Country: IN (occurrence: IN)
  Receive Date: 20230612
  Receipt Date: 20230612
  Transmission Date: 20230721
  Serious: Yes (Death)
  Sender: FDA-Public Use
  Company Number: IN-MYLANLABS-2023M1062136

PATIENT
  Age: 22 Year
  Sex: Male

DRUGS (1)
  1. PHENYTOIN [Suspect]
     Active Substance: PHENYTOIN
     Indication: Epilepsy
     Dosage: UNK
     Route: 065

REACTIONS (4)
  - Encephalopathy [Fatal]
  - Drug-induced liver injury [Fatal]
  - Hypersensitivity [Fatal]
  - Drug reaction with eosinophilia and systemic symptoms [Fatal]
